FAERS Safety Report 6742233-5 (Version None)
Quarter: 2010Q2

REPORT INFORMATION
  Report Type: 
  Country: None (occurrence: None)
  Receive Date: 20100524
  Receipt Date: 20100507
  Transmission Date: 20101027
  Serious: Yes (Death)
  Sender: FDA-Public Use
  Company Number: 010474

PATIENT
  Sex: Female

DRUGS (7)
  1. CERTOLIZUMAB PEGOL (CERTOLIZUMAB PEGOL [Suspect]
     Indication: RHEUMATOID ARTHRITIS
     Dosage: SUBCUTANEOUS
     Route: 058
     Dates: start: 20091014, end: 20100331
  2. PREDNISOLONE [Concomitant]
  3. REBAMIPIDE [Concomitant]
  4. ETODOLAC [Concomitant]
  5. PRAVASTATIN SODIUM [Concomitant]
  6. NIFEDIPINE [Concomitant]
  7. ATENOLOL [Concomitant]

REACTIONS (6)
  - AORTIC DISSECTION RUPTURE [None]
  - BACK PAIN [None]
  - CARDIO-RESPIRATORY ARREST [None]
  - CHEST PAIN [None]
  - PYREXIA [None]
  - SYNCOPE [None]
